FAERS Safety Report 5934200-6 (Version None)
Quarter: 2008Q4

REPORT INFORMATION
  Report Type: 
  Country: None (occurrence: None)
  Receive Date: 20081028
  Receipt Date: 20081028
  Transmission Date: 20090506
  Serious: Yes (Life-Threatening)
  Sender: FDA-Public Use
  Company Number: None

PATIENT
  Age: 47 Year
  Sex: Male
  Weight: 68.9467 kg

DRUGS (2)
  1. CHANTIX [Suspect]
     Indication: SMOKING CESSATION THERAPY
     Dosage: 1/2MG TWICE DAILY PO 1MG TWICE DAILY PO
     Route: 048
     Dates: start: 20080918, end: 20081018
  2. CHANTIX [Suspect]
     Indication: SMOKING CESSATION THERAPY
     Dosage: 1/2MG TWICE DAILY PO 1MG TWICE DAILY PO
     Route: 048
     Dates: start: 20081019

REACTIONS (15)
  - ABDOMINAL DISTENSION [None]
  - APATHY [None]
  - CONFUSIONAL STATE [None]
  - FATIGUE [None]
  - FLATULENCE [None]
  - ILL-DEFINED DISORDER [None]
  - IRRITABILITY [None]
  - LETHARGY [None]
  - MORBID THOUGHTS [None]
  - MUSCLE SPASMS [None]
  - NAUSEA [None]
  - SUICIDAL IDEATION [None]
  - THINKING ABNORMAL [None]
  - VOMITING [None]
  - WEIGHT INCREASED [None]
